FAERS Safety Report 9550021 (Version 1)
Quarter: 2013Q3

REPORT INFORMATION
  Report Type: Spontaneous
  Country: RU (occurrence: RU)
  Receive Date: 20130924
  Receipt Date: 20130924
  Transmission Date: 20140515
  Serious: Yes (Hospitalization)
  Sender: FDA-Public Use
  Company Number: RU-VIIV HEALTHCARE LIMITED-B0924494A

PATIENT
  Sex: Female

DRUGS (9)
  1. COMBIVIR [Suspect]
     Indication: HIV INFECTION
     Route: 048
     Dates: start: 2013, end: 2013
  2. ABACAVIR [Suspect]
     Indication: HIV INFECTION
     Route: 048
     Dates: start: 2013
  3. RITONAVIR [Suspect]
     Indication: HIV INFECTION
     Route: 048
     Dates: start: 2013
  4. HEPTOVIR [Suspect]
     Indication: HIV INFECTION
     Route: 048
     Dates: start: 2013
  5. KALETRA [Suspect]
     Indication: HIV INFECTION
     Route: 048
     Dates: start: 2013, end: 2013
  6. REYATAZ [Suspect]
     Indication: HIV INFECTION
     Route: 048
     Dates: start: 2013
  7. VIRAMUNE [Concomitant]
  8. PHOSPHAZIDE [Concomitant]
  9. TAVEGYL [Concomitant]

REACTIONS (5)
  - Urticaria [Recovered/Resolved]
  - Red blood cells urine [Not Recovered/Not Resolved]
  - Oedema [Unknown]
  - Renal pain [Unknown]
  - Exposure during pregnancy [Unknown]
